FAERS Safety Report 8029237-X (Version None)
Quarter: 2012Q1

REPORT INFORMATION
  Report Type: 
  Country: None (occurrence: None)
  Receive Date: 20120106
  Receipt Date: 20120105
  Transmission Date: 20120608
  Serious: Yes (Death, Other)
  Sender: FDA-Public Use
  Company Number: PHFR2012IE000477

PATIENT
  Sex: Female

DRUGS (2)
  1. RISPERIDONE [Concomitant]
  2. CLOZARIL [Suspect]
     Indication: SCHIZOPHRENIA
     Dosage: 500 MG,
     Dates: start: 20000120

REACTIONS (4)
  - FALL [None]
  - DEATH [None]
  - LOWER RESPIRATORY TRACT INFECTION [None]
  - FATIGUE [None]
